FAERS Safety Report 24289348 (Version 1)
Quarter: 2024Q3

REPORT INFORMATION
  Report Type: Spontaneous
  Country: US (occurrence: US)
  Receive Date: 20240906
  Receipt Date: 20240906
  Transmission Date: 20241017
  Serious: No
  Sender: AMGEN
  Company Number: US-AMGEN-USASP2024176967

PATIENT
  Sex: Female

DRUGS (9)
  1. PROCYSBI [Suspect]
     Active Substance: CYSTEAMINE BITARTRATE
     Indication: Cystinosis
     Dosage: 425 MILLIGRAM, BID (TAKE ONE 300 MG PACKET, ONE 75 MG PACKET, AND TWO 25 MG CAPSULES (425 MG) )
     Route: 048
  2. PROCYSBI [Suspect]
     Active Substance: CYSTEAMINE BITARTRATE
     Dosage: 425 MILLIGRAM, BID (TAKE ONE 300 MG PACKET, ONE 75 MG PACKET, AND TWO 25 MG CAPSULES (425 MG))
     Route: 048
  3. PROCYSBI [Suspect]
     Active Substance: CYSTEAMINE BITARTRATE
     Dosage: 425 MILLIGRAM, BID (TAKE ONE 300 MG PACKET, ONE 75 MG PACKET, AND TWO 25 MG CAPSULES (425 MG))
     Route: 048
  4. PROCYSBI [Suspect]
     Active Substance: CYSTEAMINE BITARTRATE
     Dosage: 425 MILLIGRAM, BID (TAKE ONE 300 MG PACKET, ONE 75 MG PACKET, AND TWO 25 MG CAPSULES (425 MG))
     Route: 048
  5. ZOFRAN [Concomitant]
     Active Substance: ONDANSETRON HYDROCHLORIDE
     Dosage: UNK
  6. CALCITRIOL [Concomitant]
     Active Substance: CALCITRIOL
     Dosage: 0.25 MICROGRAM
  7. SODIUM CITRATE AND CITRIC ACID [Concomitant]
     Active Substance: CITRIC ACID MONOHYDRATE\SODIUM CITRATE
     Dosage: UNK
  8. POTASSIUM [Concomitant]
     Active Substance: POTASSIUM
     Dosage: 595(99) MG
  9. SODIUM PHOSPHATE [Concomitant]
     Active Substance: SODIUM PHOSPHATE
     Dosage: UNK

REACTIONS (1)
  - Increased appetite [Unknown]
